FAERS Safety Report 7956251-2 (Version None)
Quarter: 2011Q4

REPORT INFORMATION
  Report Type: 
  Country: None (occurrence: None)
  Receive Date: 20111205
  Receipt Date: 20111124
  Transmission Date: 20120403
  Serious: Yes (Hospitalization)
  Sender: FDA-Public Use
  Company Number: IE-JNJFOC-20101102759

PATIENT
  Age: 47 Year
  Sex: Female

DRUGS (2)
  1. REMICADE [Suspect]
     Indication: CROHN'S DISEASE
     Route: 042
     Dates: start: 20071122, end: 20100415
  2. REMICADE [Suspect]
     Route: 042
     Dates: start: 20100909

REACTIONS (2)
  - APHAGIA [None]
  - MOUTH ULCERATION [None]
